FAERS Safety Report 10040886 (Version 1)
Quarter: 2014Q1

REPORT INFORMATION
  Report Type: Spontaneous
  Country: US (occurrence: US)
  Receive Date: 20140327
  Receipt Date: 20140327
  Transmission Date: 20141002
  Serious: Yes (Other)
  Sender: FDA-Public Use
  Company Number: US-PFIZER INC-2014083348

PATIENT
  Sex: Male

DRUGS (1)
  1. LYRICA [Suspect]
     Indication: NEURALGIA
     Dosage: UNK

REACTIONS (7)
  - Hallucination [Unknown]
  - Pain [Unknown]
  - Sleep disorder [Unknown]
  - Dizziness [Unknown]
  - Rash [Not Recovered/Not Resolved]
  - Neuralgia [Unknown]
  - Abnormal behaviour [Unknown]
